FAERS Safety Report 16974461 (Version 1)
Quarter: 2019Q4

REPORT INFORMATION
  Report Type: Spontaneous
  Country: US (occurrence: US)
  Receive Date: 20190913
  Receipt Date: 20190913
  Transmission Date: 20200122
  Serious: No
  Sender: FDA-Public Use
  Company Number: None

PATIENT
  Age: 48 Year
  Sex: Female

DRUGS (1)
  1. GLATOPA [Suspect]
     Active Substance: GLATIRAMER ACETATE
     Route: 058

REACTIONS (3)
  - Product dose omission [None]
  - Insurance issue [None]
  - Peripheral swelling [None]

NARRATIVE: CASE EVENT DATE: 20190913
